FAERS Safety Report 14489903 (Version 1)
Quarter: 2018Q1

REPORT INFORMATION
  Report Type: Spontaneous
  Country: KR (occurrence: KR)
  Receive Date: 20180206
  Receipt Date: 20180206
  Transmission Date: 20180509
  Serious: Yes (Other)
  Sender: FDA-Public Use
  Company Number: KR-BAUSCH-BL-2018-002167

PATIENT
  Age: 81 Year
  Sex: Male

DRUGS (11)
  1. ASPIRIN. [Suspect]
     Active Substance: ASPIRIN
     Indication: ANTICOAGULANT THERAPY
     Route: 065
  2. LIDOCAINE. [Concomitant]
     Active Substance: LIDOCAINE
     Indication: PRODUCT USED FOR UNKNOWN INDICATION
     Dosage: FIVE MILLILITERS OF INJECTATE CONTAINING 3000 U HYALURONIDASE, 4 ML SALINE, 5 MG DEXAMETHASONE, AND
  3. TRAMADOL. [Concomitant]
     Active Substance: TRAMADOL
     Indication: PRODUCT USED FOR UNKNOWN INDICATION
     Dosage: 37.5 MG; 12 HOURS
  4. ACETAMINOPHEN. [Concomitant]
     Active Substance: ACETAMINOPHEN
     Indication: PRODUCT USED FOR UNKNOWN INDICATION
     Dosage: 375 MG; 12 HOURS
  5. BERAPROST [Suspect]
     Active Substance: BERAPROST
     Indication: ANTICOAGULANT THERAPY
     Route: 065
     Dates: start: 2013
  6. SALINE [Concomitant]
     Active Substance: SODIUM CHLORIDE
     Indication: PRODUCT USED FOR UNKNOWN INDICATION
     Dosage: FIVE MILLILITERS OF INJECTATE CONTAINING 3000 U HYALURONIDASE, 4 ML SALINE, 5 MG DEXAMETHASONE, AND
  7. GABAPENTIN. [Concomitant]
     Active Substance: GABAPENTIN
     Indication: PRODUCT USED FOR UNKNOWN INDICATION
  8. CLOPIDOGREL [Suspect]
     Active Substance: CLOPIDOGREL BISULFATE
     Indication: ANTICOAGULANT THERAPY
     Route: 065
  9. HYALURONIDASE [Concomitant]
     Active Substance: HYALURONIDASE
     Indication: PRODUCT USED FOR UNKNOWN INDICATION
     Dosage: FIVE MILLILITERS OF INJECTATE CONTAINING 3000 U HYALURONIDASE, 4 ML SALINE, 5 MG DEXAMETHASONE, AND
  10. DEXAMETHASONE. [Suspect]
     Active Substance: DEXAMETHASONE
     Indication: PRODUCT USED FOR UNKNOWN INDICATION
     Dosage: FIVE MILLILITERS OF INJECTATE CONTAINING 3000 U HYALURONIDASE, 4 ML SALINE, 5 MG DEXAMETHASONE
     Route: 065
  11. OXYCODONE [Concomitant]
     Active Substance: OXYCODONE
     Indication: PRODUCT USED FOR UNKNOWN INDICATION

REACTIONS (1)
  - Extradural haematoma [Recovering/Resolving]
